FAERS Safety Report 5885660-0 (Version None)
Quarter: 2008Q3

REPORT INFORMATION
  Report Type: 
  Country: None (occurrence: None)
  Receive Date: 20080916
  Receipt Date: 20080916
  Transmission Date: 20090109
  Serious: Yes (Hospitalization)
  Sender: FDA-Public Use
  Company Number: US-GENENTECH-266004

PATIENT
  Sex: Female
  Weight: 72.562 kg

DRUGS (4)
  1. RITUXAN [Suspect]
     Indication: RHEUMATOID ARTHRITIS
     Dosage: 1 G, UNK
     Route: 042
     Dates: start: 20080521
  2. RITUXAN [Suspect]
     Indication: CONNECTIVE TISSUE DISORDER
  3. STEROIDS (UNK INGREDIENTS) [Concomitant]
     Indication: DRUG USE FOR UNKNOWN INDICATION
     Dosage: 5 MG, UNK
  4. STEROIDS (UNK INGREDIENTS) [Concomitant]
     Dosage: 10 MG, UNK

REACTIONS (2)
  - CONVULSION [None]
  - HYPERTENSIVE ENCEPHALOPATHY [None]
